FAERS Safety Report 6433411-3 (Version None)
Quarter: 2009Q4

REPORT INFORMATION
  Report Type: 
  Country: None (occurrence: None)
  Receive Date: 20091106
  Receipt Date: 20091106
  Transmission Date: 20100525
  Serious: Yes (Other)
  Sender: FDA-Public Use
  Company Number: None

PATIENT
  Age: 31 Year
  Sex: Female
  Weight: 54.8852 kg

DRUGS (1)
  1. ZOSYN [Suspect]
     Indication: ABSCESS
     Dosage: 3.375 GRAM 6 H IV
     Route: 042
     Dates: start: 20090925, end: 20090928

REACTIONS (2)
  - DIARRHOEA [None]
  - NAUSEA [None]
